FAERS Safety Report 18350939 (Version 1)
Quarter: 2020Q4

REPORT INFORMATION
  Report Type: Spontaneous
  Country: US (occurrence: US)
  Receive Date: 20201006
  Receipt Date: 20201006
  Transmission Date: 20210114
  Serious: Yes (Hospitalization, Other)
  Sender: FDA-Public Use
  Company Number: US-ASTRAZENECA-2020SF27819

PATIENT
  Age: 22177 Day
  Sex: Male
  Weight: 90.7 kg

DRUGS (2)
  1. FARXIGA [Suspect]
     Active Substance: DAPAGLIFLOZIN PROPANEDIOL
     Indication: TYPE 2 DIABETES MELLITUS
     Dosage: DOSE UNKNOWN, EVERY DAY
     Route: 048
     Dates: start: 20200807, end: 20200814
  2. MIDODRINE [Concomitant]
     Active Substance: MIDODRINE

REACTIONS (16)
  - Ketoacidosis [Recovered/Resolved]
  - Asthenia [Recovered/Resolved with Sequelae]
  - Neuropathy peripheral [Not Recovered/Not Resolved]
  - Skin discolouration [Unknown]
  - Faeces discoloured [Unknown]
  - Hypertension [Not Recovered/Not Resolved]
  - Rash [Unknown]
  - Hypotension [Not Recovered/Not Resolved]
  - Dizziness [Unknown]
  - Perineal pain [Not Recovered/Not Resolved]
  - Back pain [Unknown]
  - Blood pressure decreased [Unknown]
  - Insomnia [Not Recovered/Not Resolved]
  - Nerve injury [Unknown]
  - Diarrhoea [Recovered/Resolved]
  - Quality of life decreased [Not Recovered/Not Resolved]

NARRATIVE: CASE EVENT DATE: 20200807
